FAERS Safety Report 8580795-6 (Version None)
Quarter: 2012Q3

REPORT INFORMATION
  Report Type: 
  Country: None (occurrence: None)
  Receive Date: 20120809
  Receipt Date: 20120730
  Transmission Date: 20120928
  Serious: No
  Sender: FDA-Public Use
  Company Number: US-BIOGENIDEC-2012BI029434

PATIENT
  Age: 57 Year
  Sex: Female

DRUGS (1)
  1. AVONEX [Suspect]
     Indication: PRODUCT USED FOR UNKNOWN INDICATION
     Route: 030
     Dates: start: 20120601, end: 20120709

REACTIONS (5)
  - DEPRESSION [None]
  - URTICARIA [None]
  - HYPERSENSITIVITY [None]
  - GAIT DISTURBANCE [None]
  - ALOPECIA [None]
